FAERS Safety Report 9397925 (Version 1)
Quarter: 2013Q3

REPORT INFORMATION
  Report Type: Spontaneous
  Country: FR (occurrence: FR)
  Receive Date: 20130712
  Receipt Date: 20130712
  Transmission Date: 20140515
  Serious: Yes (Other)
  Sender: FDA-Public Use
  Company Number: FR-COVIDIEN/TYCO HEALTHCARE/MALLINCKRODT-T201303724

PATIENT
  Age: 48 Year
  Sex: Female

DRUGS (1)
  1. OPTIJECT 350 [Suspect]
     Indication: UROGRAM
     Dosage: 120 ML, SINGLE
     Route: 042
     Dates: start: 20080214, end: 20080214

REACTIONS (1)
  - Anaphylactic reaction [Recovered/Resolved]
